FAERS Safety Report 10463892 (Version 1)
Quarter: 2014Q3

REPORT INFORMATION
  Report Type: Spontaneous
  Country: GB (occurrence: None)
  Receive Date: 20140917
  Receipt Date: 20140917
  Transmission Date: 20150326
  Serious: Yes (Hospitalization)
  Sender: FDA-Public Use
  Company Number: FK201403712

PATIENT
  Age: 65 Year

DRUGS (1)
  1. CISPLATIN (MANUFACTURER UNKNOWN) (CISPLATIN) (CISPLATIN) [Suspect]
     Active Substance: CISPLATIN
     Indication: PRODUCT USED FOR UNKNOWN INDICATION
     Route: 042

REACTIONS (6)
  - Dizziness [None]
  - Malaise [None]
  - Local swelling [None]
  - Abdominal distension [None]
  - Pallor [None]
  - Cold sweat [None]

NARRATIVE: CASE EVENT DATE: 20130425
